FAERS Safety Report 6538208-1 (Version None)
Quarter: 2010Q1

REPORT INFORMATION
  Report Type: 
  Country: None (occurrence: None)
  Receive Date: 20100114
  Receipt Date: 20100111
  Transmission Date: 20100710
  Serious: Yes (Other)
  Sender: FDA-Public Use
  Company Number: NL-WYE-G05314010

PATIENT
  Age: 46 Year
  Sex: Female
  Weight: 80 kg

DRUGS (4)
  1. EFFEXOR XR [Suspect]
     Indication: ANXIETY DISORDER
     Dates: start: 20000101
  2. INEGY [Concomitant]
     Dates: start: 20060601
  3. XYZAL [Concomitant]
     Dates: start: 19990101
  4. ZALDIAR [Interacting]
     Indication: HERNIA
     Dosage: 3 TIMES A DAY 37.5 MG/325 MG
     Dates: start: 20090801

REACTIONS (9)
  - AGITATION [None]
  - ANXIETY [None]
  - CONDITION AGGRAVATED [None]
  - DRUG EFFECT DECREASED [None]
  - DRUG INTERACTION [None]
  - HYPERHIDROSIS [None]
  - MOOD SWINGS [None]
  - MUSCLE CONTRACTIONS INVOLUNTARY [None]
  - PANIC ATTACK [None]
